FAERS Safety Report 20103359 (Version 4)
Quarter: 2022Q2

REPORT INFORMATION
  Report Type: Spontaneous
  Country: BR (occurrence: BR)
  Receive Date: 20211123
  Receipt Date: 20220411
  Transmission Date: 20220721
  Serious: Yes (Other)
  Sender: FDA-Public Use
  Company Number: BR-BIOMARINAP-BR-2021-139772

PATIENT
  Age: 21 Year
  Sex: Female

DRUGS (2)
  1. NAGLAZYME [Suspect]
     Active Substance: GALSULFASE
     Indication: Mucopolysaccharidosis VI
     Dosage: UNK, QW
     Route: 042
  2. OXYGEN [Concomitant]
     Active Substance: OXYGEN
     Indication: Product used for unknown indication
     Dosage: UNK, PRN

REACTIONS (5)
  - Scoliosis [Unknown]
  - Blindness [Not Recovered/Not Resolved]
  - Gait inability [Not Recovered/Not Resolved]
  - Hernia [Unknown]
  - Hypersensitivity [Unknown]
